FAERS Safety Report 15731554 (Version 1)
Quarter: 2018Q4

REPORT INFORMATION
  Report Type: Report from Study
  Country: BR (occurrence: BR)
  Receive Date: 20181217
  Receipt Date: 20181217
  Transmission Date: 20190205
  Serious: Yes (Death, Hospitalization, Other)
  Sender: FDA-Public Use
  Company Number: PHHY2018BR187391

PATIENT
  Age: 81 Year
  Sex: Male
  Weight: 62 kg

DRUGS (4)
  1. FORASEQ [Suspect]
     Active Substance: BUDESONIDE\FORMOTEROL FUMARATE
     Indication: BRONCHITIS
  2. FORASEQ [Suspect]
     Active Substance: BUDESONIDE\FORMOTEROL FUMARATE
     Indication: ASTHMA
     Dosage: UNK UNK, QD BUDESONIDE 400 (UNITS NOT PROVIDED), FORMOTEROL FUMARATE UNKNOWN) (ABOUT 10 YEARS OR MOR
     Route: 055
  3. ATROVENT [Concomitant]
     Active Substance: IPRATROPIUM BROMIDE
     Indication: ASTHMA
     Dosage: 10 DRP, UNK (WHEN THERE WAS AN EPISODE)
     Route: 055
  4. BEROTEC [Concomitant]
     Active Substance: FENOTEROL HYDROBROMIDE
     Indication: ASTHMA
     Dosage: UNK (2-3 DROPS) (ABOUT 10 YEARS AGO)
     Route: 055

REACTIONS (8)
  - Lung disorder [Unknown]
  - Laziness [Unknown]
  - Speech disorder [Unknown]
  - Fall [Unknown]
  - Productive cough [Unknown]
  - Death [Fatal]
  - Cardio-respiratory arrest [Recovered/Resolved]
  - Femur fracture [Unknown]

NARRATIVE: CASE EVENT DATE: 20170706
